FAERS Safety Report 7367319-6 (Version None)
Quarter: 2011Q1

REPORT INFORMATION
  Report Type: 
  Country: None (occurrence: None)
  Receive Date: 20110311
  Receipt Date: 20110222
  Transmission Date: 20110831
  Serious: Yes (Other)
  Sender: FDA-Public Use
  Company Number: DSA_45143_2011

PATIENT
  Sex: Female

DRUGS (1)
  1. ELONTRIL (ELONTRIL - BUPROPION HYDROCHLORIDE) (NOT SPECIFIED) [Suspect]
     Indication: PRODUCT USED FOR UNKNOWN INDICATION
     Dosage: (ORAL)
     Route: 048
     Dates: start: 20110201

REACTIONS (1)
  - DIABETES INSIPIDUS [None]
